FAERS Safety Report 7636039-2 (Version None)
Quarter: 2011Q3

REPORT INFORMATION
  Report Type: 
  Country: None (occurrence: None)
  Receive Date: 20110719
  Receipt Date: 20110708
  Transmission Date: 20111222
  Serious: Yes (Hospitalization, Other)
  Sender: FDA-Public Use
  Company Number: 2011101984

PATIENT
  Age: 60 Year
  Sex: Male
  Weight: 68 kg

DRUGS (6)
  1. CLODREL PLUS (CLOPIDOGREL) [Concomitant]
  2. METOPROLOL SUCCINATE [Concomitant]
  3. DALTEPARIN SODIUM [Suspect]
     Indication: ANGINA UNSTABLE
     Dosage: 7500 IU, 2X/DAY
     Dates: start: 20110315, end: 20110324
  4. DALTEPARIN SODIUM [Suspect]
     Indication: CORONARY ARTERY DISEASE
     Dosage: 7500 IU, 2X/DAY
     Dates: start: 20110315, end: 20110324
  5. ECOSPIRIN (ACETYLSALICYLIC ACID) [Concomitant]
  6. ATORVASTATIN [Concomitant]

REACTIONS (2)
  - CEREBRAL INFARCTION [None]
  - CEREBROVASCULAR ACCIDENT [None]
